FAERS Safety Report 4488180-3 (Version None)
Quarter: 2004Q4

REPORT INFORMATION
  Report Type: 
  Country: None (occurrence: None)
  Receive Date: 20041028
  Receipt Date: 20041018
  Transmission Date: 20050328
  Serious: Yes (Hospitalization)
  Sender: FDA-Public Use
  Company Number: PHFR2004GB03898

PATIENT
  Age: 82 Year
  Sex: Female

DRUGS (8)
  1. DICLOFENAC [Suspect]
     Indication: PAIN
     Dates: start: 20040908, end: 20040919
  2. LISINOPRIL [Concomitant]
     Indication: BLOOD PRESSURE INCREASED
     Dosage: 15MG/DAY
  3. ATENOLOL [Concomitant]
     Dosage: 50MG/DAY
     Route: 048
  4. LACIDIPINE [Concomitant]
     Indication: BLOOD PRESSURE INCREASED
     Dosage: 4MG/DAY
     Route: 048
     Dates: end: 20040920
  5. FRAGMIN [Concomitant]
     Dosage: 2500 IU, QD
     Route: 058
     Dates: start: 20040908, end: 20040919
  6. SENNA [Concomitant]
  7. NITROFURANTOIN [Concomitant]
  8. CO-CODAMOL [Concomitant]

REACTIONS (8)
  - BLOOD CREATINE ABNORMAL [None]
  - BLOOD UREA ABNORMAL [None]
  - DUODENAL ULCER HAEMORRHAGE [None]
  - HAEMATEMESIS [None]
  - HAEMOGLOBIN ABNORMAL [None]
  - HIATUS HERNIA [None]
  - MELAENA [None]
  - OESOPHAGITIS [None]
